FAERS Safety Report 4786040-1 (Version None)
Quarter: 2005Q3

REPORT INFORMATION
  Report Type: 
  Country: None (occurrence: None)
  Receive Date: 20050930
  Receipt Date: 20050919
  Transmission Date: 20060218
  Serious: Yes (Disabling)
  Sender: FDA-Public Use
  Company Number: 2005107268

PATIENT
  Sex: Male

DRUGS (1)
  1. VIAGRA [Suspect]
     Indication: ERECTILE DYSFUNCTION
     Dosage: 100 MG (50 MB, 1 ), ORAL
     Route: 048
     Dates: start: 20020101, end: 20050601

REACTIONS (3)
  - EYE IRRITATION [None]
  - GLAUCOMA [None]
  - VISUAL ACUITY REDUCED [None]
